FAERS Safety Report 17955796 (Version 1)
Quarter: 2020Q2

REPORT INFORMATION
  Report Type: Spontaneous
  Country: US (occurrence: US)
  Receive Date: 20200627
  Receipt Date: 20200627
  Transmission Date: 20200714
  Serious: Yes (Death)
  Sender: FDA-Public Use
  Company Number: None

PATIENT
  Age: 79 Year
  Sex: Male

DRUGS (1)
  1. ENOXAPARIN PFS 120MG/0.8ML [Suspect]
     Active Substance: ENOXAPARIN
     Route: 058
     Dates: start: 202006, end: 20200625

REACTIONS (1)
  - Death [None]

NARRATIVE: CASE EVENT DATE: 20200625
